FAERS Safety Report 6482370-6 (Version None)
Quarter: 2009Q4

REPORT INFORMATION
  Report Type: 
  Country: None (occurrence: None)
  Receive Date: 20091208
  Receipt Date: 20090526
  Transmission Date: 20100525
  Serious: No
  Sender: FDA-Public Use
  Company Number: US-AMGEN-KDL348740

PATIENT
  Sex: Male

DRUGS (1)
  1. ENBREL [Suspect]
     Indication: PSORIASIS
     Route: 058

REACTIONS (5)
  - FEELING ABNORMAL [None]
  - INDIFFERENCE [None]
  - INSOMNIA [None]
  - MOOD SWINGS [None]
  - NIGHTMARE [None]
